FAERS Safety Report 24390644 (Version 1)
Quarter: 2024Q4

REPORT INFORMATION
  Report Type: Spontaneous
  Country: US (occurrence: US)
  Receive Date: 20241003
  Receipt Date: 20241003
  Transmission Date: 20250114
  Serious: No
  Sender: HIKMA
  Company Number: HIKM2400379

PATIENT
  Sex: Female

DRUGS (1)
  1. DEXAMETHASONE [Suspect]
     Active Substance: DEXAMETHASONE
     Indication: Hypersensitivity
     Dosage: 10 MILLIGRAM, SINGLE
     Route: 042
     Dates: start: 20240201

REACTIONS (11)
  - Muscular weakness [Unknown]
  - Arthralgia [Unknown]
  - Asthenia [Unknown]
  - Gait disturbance [Unknown]
  - Joint swelling [Unknown]
  - Pain in extremity [Unknown]
  - Malaise [Unknown]
  - Headache [Unknown]
  - Dry eye [Unknown]
  - Dry mouth [Unknown]
  - Hypoaesthesia [Unknown]

NARRATIVE: CASE EVENT DATE: 20240202
